FAERS Safety Report 10071402 (Version 1)
Quarter: 2014Q2

REPORT INFORMATION
  Report Type: Spontaneous
  Country: IT (occurrence: IT)
  Receive Date: 20140410
  Receipt Date: 20140410
  Transmission Date: 20141212
  Serious: Yes (Hospitalization)
  Sender: FDA-Public Use
  Company Number: IT-WATSON-2014-06840

PATIENT
  Age: 44 Year
  Sex: Female

DRUGS (3)
  1. TOPIRAMATE (UNKNOWN) [Suspect]
     Indication: DRUG ABUSE
     Dosage: 10 DF, TOTAL
     Route: 048
     Dates: start: 20140215, end: 20140215
  2. SERTRALINE (UNKNOWN) [Suspect]
     Indication: DRUG ABUSE
     Dosage: 10 DF, TOTAL
     Route: 048
     Dates: start: 20140215, end: 20140215
  3. ALPRAZOLAM (UNKNOWN) [Suspect]
     Indication: DRUG ABUSE
     Dosage: 10 DF, TOTAL
     Route: 048
     Dates: start: 20140215, end: 20140215

REACTIONS (4)
  - Confusional state [Unknown]
  - Agitation [Unknown]
  - Vomiting [Unknown]
  - Drug abuse [Unknown]
